FAERS Safety Report 21775381 (Version 1)
Quarter: 2022Q4

REPORT INFORMATION
  Report Type: Report from Study
  Country: US (occurrence: US)
  Receive Date: 20221225
  Receipt Date: 20221225
  Transmission Date: 20230113
  Serious: No
  Sender: FDA-Public Use
  Company Number: US-ABBVIE-4198930

PATIENT

DRUGS (1)
  1. HUMIRA [Suspect]
     Active Substance: ADALIMUMAB
     Indication: Product used for unknown indication
     Route: 058

REACTIONS (9)
  - Anaemia [Unknown]
  - Illness [Unknown]
  - Constipation [Unknown]
  - Diarrhoea [Unknown]
  - Haemorrhage [Unknown]
  - Pain [Unknown]
  - Condition aggravated [Unknown]
  - Mucosal inflammation [Unknown]
  - Dehydration [Unknown]
